FAERS Safety Report 19717995 (Version 1)
Quarter: 2021Q3

REPORT INFORMATION
  Report Type: Report from Study
  Country: US (occurrence: US)
  Receive Date: 20210818
  Receipt Date: 20210818
  Transmission Date: 20211014
  Serious: Yes (Other)
  Sender: FDA-Public Use
  Company Number: US-MYLANLABS-2021M1052975

PATIENT
  Sex: Female

DRUGS (4)
  1. PERTUZUMAB. [Suspect]
     Active Substance: PERTUZUMAB
     Dosage: 420 MILLIGRAM, Q3W,OVER 30?60 MINUTES
     Route: 042
  2. TRASTUZUMAB. [Suspect]
     Active Substance: TRASTUZUMAB
     Dosage: 6 MILLIGRAM/KILOGRAM, Q3W,OVER 30?60MINUTES
     Route: 042
  3. PERTUZUMAB. [Suspect]
     Active Substance: PERTUZUMAB
     Indication: UTERINE CANCER
     Dosage: 840 MILLIGRAM, Q3W
     Route: 042
  4. TRASTUZUMAB. [Suspect]
     Active Substance: TRASTUZUMAB
     Indication: UTERINE CANCER
     Dosage: 8 MILLIGRAM/KILOGRAM, Q3W, INITIAL DOSE
     Route: 042

REACTIONS (1)
  - Muscular weakness [Unknown]
